FAERS Safety Report 23866184 (Version 1)
Quarter: 2024Q2

REPORT INFORMATION
  Report Type: Spontaneous
  Country: US (occurrence: US)
  Receive Date: 20240517
  Receipt Date: 20240517
  Transmission Date: 20240716
  Serious: Yes (Other)
  Sender: FDA-Public Use
  Company Number: US-BEH-2024172246

PATIENT
  Age: 7 Year
  Sex: Male

DRUGS (2)
  1. IDELVION [Suspect]
     Active Substance: COAGULATION FACTOR IX RECOMBINANT HUMAN
     Indication: Factor IX deficiency
     Dosage: 750 IU, QW
     Route: 042
     Dates: start: 201702
  2. IDELVION [Suspect]
     Active Substance: COAGULATION FACTOR IX RECOMBINANT HUMAN
     Indication: Factor IX deficiency
     Dosage: 750 IU, QW
     Route: 042
     Dates: start: 201702

REACTIONS (2)
  - Haemarthrosis [Unknown]
  - Haemarthrosis [Unknown]
